FAERS Safety Report 13999697 (Version 1)
Quarter: 2017Q3

REPORT INFORMATION
  Report Type: Spontaneous
  Country: BR (occurrence: BR)
  Receive Date: 20170922
  Receipt Date: 20170922
  Transmission Date: 20171128
  Serious: Yes (Other)
  Sender: FDA-Public Use
  Company Number: BR-ABBVIE-17K-020-2106876-00

PATIENT
  Sex: Female

DRUGS (1)
  1. HUMIRA [Suspect]
     Active Substance: ADALIMUMAB
     Indication: CROHN^S DISEASE
     Route: 058

REACTIONS (7)
  - Asthenia [Unknown]
  - Dry skin [Unknown]
  - Cervix carcinoma [Unknown]
  - Weight decreased [Unknown]
  - Pyrexia [Unknown]
  - Lip dry [Unknown]
  - Adverse event [Unknown]
